FAERS Safety Report 20214865 (Version 2)
Quarter: 2022Q1

REPORT INFORMATION
  Report Type: Spontaneous
  Country: US (occurrence: US)
  Receive Date: 20211222
  Receipt Date: 20220201
  Transmission Date: 20220423
  Serious: Yes (Other)
  Sender: FDA-Public Use
  Company Number: US-AMGEN-USASP2021201132

PATIENT
  Age: 60 Year
  Sex: Male
  Weight: 97.959 kg

DRUGS (23)
  1. OTEZLA [Suspect]
     Active Substance: APREMILAST
     Indication: Arthralgia
     Dosage: 30 MILLIGRAM, BID
     Route: 048
     Dates: start: 202102
  2. OTEZLA [Suspect]
     Active Substance: APREMILAST
     Indication: Psoriatic arthropathy
  3. ASPIRIN [Concomitant]
     Active Substance: ASPIRIN
     Dosage: 81 MILLIGRAM, QD
     Route: 065
  4. DILTIAZEM HYDROCHLORIDE [Concomitant]
     Active Substance: DILTIAZEM HYDROCHLORIDE
     Dosage: 120 MILLIGRAM, TID
     Route: 048
  5. LOSARTAN [Concomitant]
     Active Substance: LOSARTAN
     Dosage: 50 MILLIGRAM, QD
     Route: 048
  6. VITAMINS [Concomitant]
     Active Substance: VITAMINS
     Dosage: UNK UNK, QD
     Route: 065
  7. NEXIUM I.V. [Concomitant]
     Active Substance: ESOMEPRAZOLE SODIUM
     Dosage: 40 MILLIGRAM, QD
     Route: 048
  8. PROPAFENONE [Concomitant]
     Active Substance: PROPAFENONE
     Dosage: 225 MILLIGRAM, TID
     Route: 048
  9. TESTOSTERONE [Concomitant]
     Active Substance: TESTOSTERONE
     Dosage: 0.4 MILLILITER, Q2WK
  10. UNITHROID [Concomitant]
     Active Substance: LEVOTHYROXINE SODIUM
     Dosage: 275 MICROGRAM, QD
     Route: 048
  11. COENZYME Q10 [Concomitant]
     Active Substance: DIETARY SUPPLEMENT\UBIDECARENONE
     Dosage: 30 MILLIGRAM, QD
     Route: 065
  12. COENZYME Q10 [Concomitant]
     Active Substance: DIETARY SUPPLEMENT\UBIDECARENONE
     Dosage: 50 MILLIGRAM, QD
     Route: 065
  13. FISH OIL [Concomitant]
     Active Substance: FISH OIL
     Dosage: 1000 MILLIGRAM, BID
     Route: 065
  14. LEVOMEFOLATE CALCIUM [Concomitant]
     Active Substance: LEVOMEFOLATE CALCIUM
     Dosage: 1000 MILLIGRAM, QD
     Route: 065
  15. VITAMIN C [Concomitant]
     Active Substance: ASCORBIC ACID
     Dosage: 1000 MILLIGRAM, QD
     Route: 065
  16. CARISOPRODOL [Concomitant]
     Active Substance: CARISOPRODOL
     Dosage: 350 MILLIGRAM, QD (AT BEDTIME)
     Route: 048
  17. XYOSTED [Concomitant]
     Active Substance: TESTOSTERONE ENANTHATE
     Dosage: 100 MILLIGRAM, QWK (ABDOMEN)
     Route: 058
  18. ASPIRIN [Concomitant]
     Active Substance: ASPIRIN
     Dosage: 1 DOSAGE FORM, QD
     Route: 048
  19. FISH OIL [Concomitant]
     Active Substance: FISH OIL
     Dosage: 1000 MILLIGRAM
     Route: 065
  20. LOPERAMIDE [Concomitant]
     Active Substance: LOPERAMIDE
     Dosage: 2 MILLIGRAM (TAKE 4 TABLET BY ORAL ROUTE AFTER LST LOOSE STOOL AND 1 TABLET (2 MG) AFTER EACH NEXT B
     Route: 048
  21. COVID-19 VACCINE [Concomitant]
     Dosage: UNK
     Route: 065
  22. COVID-19 VACCINE [Concomitant]
     Dosage: UNK
     Route: 065
  23. LOPERAMIDE HYDROCHLORIDE [Concomitant]
     Active Substance: LOPERAMIDE HYDROCHLORIDE
     Dosage: 2 DOSAGE FORM (AS NEEDED)

REACTIONS (29)
  - Psoriatic arthropathy [Not Recovered/Not Resolved]
  - Tonsil cancer [Unknown]
  - Deafness [Unknown]
  - Apnoea [Unknown]
  - Osteoarthritis [Unknown]
  - Pain [Unknown]
  - Myalgia [Unknown]
  - Dry eye [Unknown]
  - Chronic fatigue syndrome [Not Recovered/Not Resolved]
  - Thyroxine free increased [Unknown]
  - Spinal osteoarthritis [Unknown]
  - Chills [Unknown]
  - Pyrexia [Unknown]
  - Night sweats [Unknown]
  - Varicose vein [Unknown]
  - Dyspepsia [Unknown]
  - Temperature intolerance [Unknown]
  - Hot flush [Unknown]
  - Memory impairment [Unknown]
  - Hypoaesthesia [Unknown]
  - Paraesthesia [Unknown]
  - Insomnia [Unknown]
  - Musculoskeletal stiffness [Unknown]
  - Muscular weakness [Unknown]
  - Nodal osteoarthritis [Unknown]
  - Diarrhoea [Unknown]
  - Back pain [Unknown]
  - Decreased appetite [Unknown]
  - Headache [Unknown]

NARRATIVE: CASE EVENT DATE: 20210811
